FAERS Safety Report 8525383-2 (Version None)
Quarter: 2012Q3

REPORT INFORMATION
  Report Type: 
  Country: None (occurrence: None)
  Receive Date: 20120720
  Receipt Date: 20120711
  Transmission Date: 20120928
  Serious: No
  Sender: FDA-Public Use
  Company Number: GB-MUTUAL PHARMACEUTICAL COMPANY, INC.-ALLP20120002

PATIENT
  Age: 62 Year
  Sex: Male

DRUGS (1)
  1. ALLOPURINOL [Suspect]
     Indication: GOUT
     Route: 065

REACTIONS (5)
  - TOXIC EPIDERMAL NECROLYSIS [None]
  - BLOOD BICARBONATE INCREASED [None]
  - TACHYCARDIA [None]
  - BLOOD UREA INCREASED [None]
  - COMPARTMENT SYNDROME [None]
